FAERS Safety Report 8006890-8 (Version None)
Quarter: 2011Q4

REPORT INFORMATION
  Report Type: 
  Country: None (occurrence: None)
  Receive Date: 20111227
  Receipt Date: 20111221
  Transmission Date: 20120403
  Serious: Yes (Death, Other)
  Sender: FDA-Public Use
  Company Number: US-AMGEN-USASP2011065615

PATIENT
  Age: 79 Year
  Sex: Male
  Weight: 49.7 kg

DRUGS (8)
  1. NPLATE [Suspect]
     Indication: APLASTIC ANAEMIA
     Dosage: 50 MUG, QWK
     Route: 042
     Dates: start: 20110622, end: 20110706
  2. PROCRIT [Concomitant]
  3. FOLIC ACID [Concomitant]
     Indication: ANAEMIA
     Dosage: 1 MG, UNK
     Route: 048
  4. NEUPOGEN [Concomitant]
  5. DILTIAZEM HCL [Concomitant]
     Indication: HYPERTENSION
     Dosage: 180 MG, UNK
     Route: 048
  6. COREG [Concomitant]
     Indication: HYPERTENSION
     Dosage: 6.25 UNK, UNK
     Route: 048
  7. DECITABINE [Concomitant]
     Dosage: 30 MG, UNK
     Route: 042
     Dates: start: 20110718
  8. RISACAL-D [Concomitant]
     Route: 048

REACTIONS (3)
  - DEATH [None]
  - FEBRILE NEUTROPENIA [None]
  - DRUG INEFFECTIVE [None]
